FAERS Safety Report 8018388-1 (Version None)
Quarter: 2012Q1

REPORT INFORMATION
  Report Type: 
  Country: None (occurrence: None)
  Receive Date: 20120103
  Receipt Date: 20111223
  Transmission Date: 20120608
  Serious: Yes (Hospitalization)
  Sender: FDA-Public Use
  Company Number: US-BAYER-2011-041061

PATIENT
  Age: 48 Year
  Sex: Female
  Weight: 92.971 kg

DRUGS (9)
  1. SYNTHROID [Concomitant]
     Dosage: UNK
     Dates: start: 20040801, end: 20110201
  2. LEVOTHYROXINE SODIUM [Concomitant]
     Dosage: UNK
     Dates: start: 20110201
  3. YASMIN [Suspect]
     Indication: PREMENSTRUAL SYNDROME
     Dosage: UNK
     Route: 048
     Dates: start: 20050901, end: 20060801
  4. LEVOTHYROXINE SODIUM [Concomitant]
     Dosage: UNK
     Dates: start: 20040801, end: 20110201
  5. YASMIN [Suspect]
     Indication: ACNE
  6. SYNTHROID [Concomitant]
     Indication: HYPOTHYROIDISM
     Dosage: UNK
     Dates: start: 19991001, end: 20040301
  7. YASMIN [Suspect]
  8. SYNTHROID [Concomitant]
     Dosage: UNK
     Dates: start: 20110201
  9. LEVOTHYROXINE SODIUM [Concomitant]
     Indication: HYPOTHYROIDISM
     Dosage: UNK
     Dates: start: 19991001, end: 20040301

REACTIONS (10)
  - DYSPNOEA [None]
  - PAIN IN EXTREMITY [None]
  - OEDEMA PERIPHERAL [None]
  - EMOTIONAL DISTRESS [None]
  - ASTHENIA [None]
  - ANXIETY [None]
  - INJURY [None]
  - DEEP VEIN THROMBOSIS [None]
  - PAIN [None]
  - PULMONARY EMBOLISM [None]
